FAERS Safety Report 6079247-7 (Version None)
Quarter: 2009Q1

REPORT INFORMATION
  Report Type: 
  Country: None (occurrence: None)
  Receive Date: 20090216
  Receipt Date: 20090211
  Transmission Date: 20090719
  Serious: Yes (Death, Hospitalization)
  Sender: FDA-Public Use
  Company Number: PHHO2008BR11505

PATIENT
  Sex: Male

DRUGS (9)
  1. CYCLOSPORINE [Suspect]
     Indication: RENAL TRANSPLANT
     Dosage: 150 MG / DAY
     Route: 048
     Dates: start: 20080317, end: 20080908
  2. CYCLOSPORINE [Suspect]
     Dosage: NO TREATMENT
     Dates: start: 20080909, end: 20080914
  3. CYCLOSPORINE [Suspect]
     Dosage: 150 MG, QD
     Route: 048
     Dates: start: 20080915
  4. MYCOPHENOLATE MOFETIL [Concomitant]
     Indication: RENAL TRANSPLANT
     Dosage: UNK
     Dates: start: 20060123
  5. AAS [Concomitant]
  6. PROPRANOLOL [Concomitant]
  7. CAPTOPRIL [Concomitant]
  8. FLUCONAZOLE [Concomitant]
  9. PREDNISONE [Concomitant]
     Indication: RENAL TRANSPLANT
     Dosage: UNK
     Dates: start: 20071208

REACTIONS (23)
  - ATRIAL FIBRILLATION [None]
  - BLOOD CHOLESTEROL INCREASED [None]
  - BLOOD CREATININE INCREASED [None]
  - BLOOD PRESSURE INCREASED [None]
  - BLOOD TRIGLYCERIDES INCREASED [None]
  - BRADYCARDIA [None]
  - CARDIO-RESPIRATORY ARREST [None]
  - COMA [None]
  - COMPLICATIONS OF TRANSPLANTED KIDNEY [None]
  - CONFUSIONAL STATE [None]
  - CONJUNCTIVITIS [None]
  - DIALYSIS [None]
  - DISORIENTATION [None]
  - HAEMODIALYSIS [None]
  - HAEMODYNAMIC INSTABILITY [None]
  - HYPOXIC ENCEPHALOPATHY [None]
  - KIDNEY TRANSPLANT REJECTION [None]
  - MECHANICAL VENTILATION [None]
  - PLATELET COUNT DECREASED [None]
  - PSYCHOMOTOR HYPERACTIVITY [None]
  - SEPTIC SHOCK [None]
  - SHOCK [None]
  - WHITE BLOOD CELL COUNT INCREASED [None]
